FAERS Safety Report 11720566 (Version 2)
Quarter: 2016Q1

REPORT INFORMATION
  Report Type: Spontaneous
  Country: KR (occurrence: KR)
  Receive Date: 20151110
  Receipt Date: 20160308
  Transmission Date: 20160525
  Serious: Yes (Death, Other)
  Sender: FDA-Public Use
  Company Number: KR-SA-2015SA178406

PATIENT
  Age: 36 Year
  Sex: Female

DRUGS (3)
  1. WARFARIN SODIUM. [Suspect]
     Active Substance: WARFARIN SODIUM
     Indication: ANTICOAGULANT THERAPY
     Route: 065
  2. ENOXAPARIN SODIUM. [Suspect]
     Active Substance: ENOXAPARIN SODIUM
     Indication: ATRIAL THROMBOSIS
     Route: 058
  3. ESOMEPRAZOLE [Suspect]
     Active Substance: ESOMEPRAZOLE
     Route: 065

REACTIONS (13)
  - Respiratory rate increased [Fatal]
  - Haemodynamic instability [Fatal]
  - Dyspnoea [Fatal]
  - Thrombocytopenia [Fatal]
  - Heart rate increased [Fatal]
  - Hypotension [Fatal]
  - Haemoptysis [Fatal]
  - Oxygen saturation decreased [Fatal]
  - Ventricular hypokinesia [Unknown]
  - Dilatation ventricular [Unknown]
  - Pulmonary embolism [Fatal]
  - Pulmonary haemorrhage [Fatal]
  - Pulmonary oedema [Fatal]
